FAERS Safety Report 4440798-X (Version None)
Quarter: 2004Q3

REPORT INFORMATION
  Report Type: 
  Country: None (occurrence: None)
  Receive Date: 20040831
  Receipt Date: 20040521
  Transmission Date: 20050211
  Serious: No
  Sender: FDA-Public Use
  Company Number: 701947

PATIENT
  Age: 50 Year
  Sex: Female

DRUGS (4)
  1. AMEVIVE [Suspect]
     Indication: PSORIASIS
     Dosage: 15 MG QW IM
     Route: 030
     Dates: start: 20040423
  2. ULTRAVATE [Concomitant]
  3. CUTIVATE [Concomitant]
  4. DOVONEX [Concomitant]

REACTIONS (2)
  - CD4 LYMPHOCYTES INCREASED [None]
  - HAEMATOCRIT INCREASED [None]
